FAERS Safety Report 17903317 (Version 2)
Quarter: 2020Q2

REPORT INFORMATION
  Report Type: Spontaneous
  Country: US (occurrence: US)
  Receive Date: 20200617
  Receipt Date: 20200630
  Transmission Date: 20200714
  Serious: Yes (Disabling, Other)
  Sender: FDA-Public Use
  Company Number: US-SA-2020SA153170

PATIENT

DRUGS (2)
  1. ZANTAC [Suspect]
     Active Substance: RANITIDINE HYDROCHLORIDE
     Indication: DYSPEPSIA
  2. ZANTAC [Suspect]
     Active Substance: RANITIDINE HYDROCHLORIDE
     Indication: ANTACID THERAPY
     Dosage: 1 DF, QD
     Dates: start: 2000, end: 2016

REACTIONS (15)
  - Mental impairment [Unknown]
  - Anxiety [Unknown]
  - Ill-defined disorder [Unknown]
  - Bladder cancer [Unknown]
  - Impaired work ability [Unknown]
  - Discomfort [Unknown]
  - Emotional distress [Unknown]
  - Depression [Unknown]
  - Injury [Unknown]
  - Sleep disorder [Unknown]
  - Pain [Unknown]
  - Disturbance in attention [Unknown]
  - Asthenia [Unknown]
  - Loss of personal independence in daily activities [Unknown]
  - Psychiatric symptom [Unknown]

NARRATIVE: CASE EVENT DATE: 20161128
